FAERS Safety Report 24762484 (Version 1)
Quarter: 2024Q4

REPORT INFORMATION
  Report Type: Spontaneous
  Country: JP (occurrence: JP)
  Receive Date: 20241221
  Receipt Date: 20241221
  Transmission Date: 20250115
  Serious: Yes (Death)
  Sender: ABBVIE
  Company Number: JP-ABBVIE-6057941

PATIENT

DRUGS (1)
  1. ASENAPINE MALEATE [Suspect]
     Active Substance: ASENAPINE MALEATE
     Indication: Schizophrenia
     Dosage: FORM STRENGTH: 5 MG, UNFLAVOURED
     Route: 060

REACTIONS (1)
  - Renal impairment [Fatal]
